FAERS Safety Report 25665050 (Version 1)
Quarter: 2025Q3

REPORT INFORMATION
  Report Type: Spontaneous
  Country: US (occurrence: None)
  Receive Date: 20250809
  Receipt Date: 20250809
  Transmission Date: 20251020
  Serious: Yes (Hospitalization)
  Sender: FDA-CTU
  Company Number: None

PATIENT
  Age: 76 Year
  Sex: Female
  Weight: 73 kg

DRUGS (3)
  1. FLUOROURACIL [Suspect]
     Active Substance: FLUOROURACIL
  2. LEUCOVORIN CALCIUM [Suspect]
     Active Substance: LEUCOVORIN CALCIUM
  3. ELOXATIN [Suspect]
     Active Substance: OXALIPLATIN

REACTIONS (6)
  - Dyspnoea [None]
  - Peripheral swelling [None]
  - Dizziness [None]
  - Fatigue [None]
  - Oedema peripheral [None]
  - Deep vein thrombosis [None]

NARRATIVE: CASE EVENT DATE: 20250521
